FAERS Safety Report 9927405 (Version 3)
Quarter: 2014Q2

REPORT INFORMATION
  Report Type: Report from Study
  Country: CA (occurrence: CA)
  Receive Date: 20140226
  Receipt Date: 20140404
  Transmission Date: 20141212
  Serious: Yes (Hospitalization)
  Sender: FDA-Public Use
  Company Number: PHHY2014CA022399

PATIENT
  Age: 56 Year
  Sex: Male

DRUGS (4)
  1. SANDOSTATIN LAR [Suspect]
     Indication: NEUROENDOCRINE TUMOUR
     Dosage: 30 MG, EVERY 4 WEEKS
     Route: 030
     Dates: start: 20110530
  2. SANDOSTATIN LAR [Suspect]
     Indication: HEPATIC NEOPLASM
  3. AFINITOR [Concomitant]
     Indication: NEUROENDOCRINE TUMOUR
     Dosage: 10 MG, QD
     Route: 048
     Dates: start: 20110712
  4. AFINITOR [Concomitant]
     Indication: HEPATIC NEOPLASM

REACTIONS (3)
  - Pneumonia [Recovering/Resolving]
  - Malaise [Unknown]
  - Prostatomegaly [Unknown]
